FAERS Safety Report 25919082 (Version 1)
Quarter: 2025Q4

REPORT INFORMATION
  Report Type: Spontaneous
  Country: KR (occurrence: KR)
  Receive Date: 20251014
  Receipt Date: 20251014
  Transmission Date: 20260118
  Serious: Yes (Other)
  Sender: ELI LILLY AND COMPANY
  Company Number: KR-ELI_LILLY_AND_COMPANY-KR202510010857

PATIENT
  Sex: Female

DRUGS (7)
  1. CYMBALTA [Suspect]
     Active Substance: DULOXETINE HYDROCHLORIDE
     Indication: Embolic cerebral infarction
     Dosage: 30 MG, BID
     Route: 065
     Dates: start: 20240613, end: 20240703
  2. PREGABALIN [Suspect]
     Active Substance: PREGABALIN
     Indication: Embolic cerebral infarction
     Dosage: 1 DOSAGE FORM, DAILY
     Route: 065
     Dates: start: 20240613, end: 20240703
  3. FERROUS SULFATE [Suspect]
     Active Substance: FERROUS SULFATE
     Indication: Embolic cerebral infarction
     Dosage: 1 DOSAGE FORM, BID
     Route: 065
     Dates: start: 20240613, end: 20240703
  4. EZETIMIBE\ROSUVASTATIN [Suspect]
     Active Substance: EZETIMIBE\ROSUVASTATIN
     Indication: Embolic cerebral infarction
     Dosage: 1 DOSAGE FORM, DAILY
     Route: 065
     Dates: start: 20240613, end: 20240703
  5. REBAMIPIDE [Suspect]
     Active Substance: REBAMIPIDE
     Indication: Embolic cerebral infarction
     Dosage: 1 DOSAGE FORM, BID
     Route: 065
     Dates: start: 20240613, end: 20240703
  6. CLOPIDOGREL BISULFATE [Suspect]
     Active Substance: CLOPIDOGREL BISULFATE
     Indication: Embolic cerebral infarction
     Dosage: 1 DOSAGE FORM, DAILY
     Route: 065
     Dates: start: 20240613, end: 20240703
  7. PIOGLITAZONE HYDROCHLORIDE [Suspect]
     Active Substance: PIOGLITAZONE HYDROCHLORIDE
     Indication: Embolic cerebral infarction
     Dosage: 1 DOSAGE FORM, DAILY
     Route: 065
     Dates: start: 20240613, end: 20240703

REACTIONS (3)
  - Delirium [Recovered/Resolved]
  - Restless legs syndrome [Recovered/Resolved]
  - Off label use [Unknown]

NARRATIVE: CASE EVENT DATE: 20240613
